FAERS Safety Report 22203029 (Version 3)
Quarter: 2023Q2

REPORT INFORMATION
  Report Type: Spontaneous
  Country: US (occurrence: US)
  Receive Date: 20230412
  Receipt Date: 20230525
  Transmission Date: 20230721
  Serious: No
  Sender: FDA-Public Use
  Company Number: US-PFIZER INC-PV202300063761

PATIENT
  Age: 68 Year
  Sex: Female

DRUGS (2)
  1. IBRANCE [Suspect]
     Active Substance: PALBOCICLIB
     Indication: Hormone receptor positive breast cancer
     Dosage: 125 MG
     Dates: start: 20200711
  2. LETROZOLE [Suspect]
     Active Substance: LETROZOLE
     Indication: Hormone receptor positive breast cancer
     Dosage: UNK
     Dates: start: 20200711

REACTIONS (15)
  - Myalgia [Unknown]
  - Vitamin D decreased [Unknown]
  - Pruritus [Recovered/Resolved]
  - Rash [Recovered/Resolved]
  - Blister [Unknown]
  - Ear pruritus [Unknown]
  - Hot flush [Unknown]
  - Abdominal pain [Unknown]
  - Abdominal hernia [Unknown]
  - Pain in extremity [Recovered/Resolved]
  - Swelling [Unknown]
  - Alopecia [Unknown]
  - COVID-19 [Unknown]
  - Osteopenia [Unknown]
  - Acne [Unknown]

NARRATIVE: CASE EVENT DATE: 20200722
